FAERS Safety Report 6085519-2 (Version None)
Quarter: 2009Q1

REPORT INFORMATION
  Report Type: 
  Country: None (occurrence: None)
  Receive Date: 20090217
  Receipt Date: 20080618
  Transmission Date: 20090719
  Serious: Yes (Other)
  Sender: FDA-Public Use
  Company Number: US-WYE-H04563408

PATIENT
  Age: 29 Year
  Sex: Male
  Weight: 91.71 kg

DRUGS (1)
  1. ALAVERT [Suspect]

REACTIONS (1)
  - PANIC ATTACK [None]
